FAERS Safety Report 8808552 (Version 1)
Quarter: 2012Q4

REPORT INFORMATION
  Report Type: 
  Country: GB (occurrence: GB)
  Receive Date: 20120926
  Receipt Date: 20120926
  Transmission Date: 20130627
  Serious: Yes (Other)
  Sender: FDA-Public Use
  Company Number: PHHY2012GB081999

PATIENT
  Sex: Male

DRUGS (1)
  1. CICLOSPORIN [Suspect]
     Indication: PROPHYLAXIS AGAINST GRAFT VERSUS HOST DISEASE

REACTIONS (10)
  - Pulmonary oedema [Unknown]
  - Ascites [Unknown]
  - Porphyria acute [Unknown]
  - Concomitant disease progression [Unknown]
  - Delayed puberty [Unknown]
  - Hypertension [Unknown]
  - Thrombocytopenia [Unknown]
  - Febrile neutropenia [Unknown]
  - Renal failure [Unknown]
  - Bone marrow failure [Unknown]
